FAERS Safety Report 5367339-7 (Version None)
Quarter: 2007Q2

REPORT INFORMATION
  Report Type: 
  Country: None (occurrence: None)
  Receive Date: 20070622
  Receipt Date: 20060501
  Transmission Date: 20071010
  Serious: No
  Sender: FDA-Public Use
  Company Number: US-ASTRAZENECA-2006UW08220

PATIENT
  Age: 67 Year
  Sex: Female
  Weight: 52.6 kg

DRUGS (5)
  1. PULMICORT [Suspect]
     Indication: LUNG INFECTION
     Route: 055
  2. XANAX [Concomitant]
  3. HYDROCODONE BITARTRATE [Concomitant]
  4. XANAX [Concomitant]
  5. DURAGESIC-100 [Concomitant]

REACTIONS (3)
  - ECCHYMOSIS [None]
  - NAUSEA [None]
  - TREMOR [None]
